FAERS Safety Report 25844965 (Version 1)
Quarter: 2025Q3

REPORT INFORMATION
  Report Type: Spontaneous
  Country: US (occurrence: US)
  Receive Date: 20250925
  Receipt Date: 20250925
  Transmission Date: 20251020
  Serious: Yes (Life-Threatening, Hospitalization, Other)
  Sender: GLAXOSMITHKLINE
  Company Number: US-GSK-US2025GSK122038

PATIENT
  Age: 75 Year
  Sex: Female

DRUGS (6)
  1. DOSTARLIMAB [Suspect]
     Active Substance: DOSTARLIMAB
     Indication: Endometrial adenocarcinoma
  2. DOSTARLIMAB [Suspect]
     Active Substance: DOSTARLIMAB
     Indication: Mismatch repair cancer syndrome
  3. CARBOPLATIN [Concomitant]
     Active Substance: CARBOPLATIN
     Indication: Endometrial adenocarcinoma
  4. CARBOPLATIN [Concomitant]
     Active Substance: CARBOPLATIN
     Indication: Mismatch repair cancer syndrome
  5. PACLITAXEL [Concomitant]
     Active Substance: PACLITAXEL
     Indication: Endometrial adenocarcinoma
  6. PACLITAXEL [Concomitant]
     Active Substance: PACLITAXEL
     Indication: Mismatch repair cancer syndrome

REACTIONS (3)
  - Myocarditis-myositis-myasthenia gravis overlap syndrome [Recovering/Resolving]
  - Cardiotoxicity [Recovering/Resolving]
  - Acute respiratory failure [Not Recovered/Not Resolved]
